FAERS Safety Report 8882384 (Version 3)
Quarter: 2012Q4

REPORT INFORMATION
  Report Type: 
  Country: US (occurrence: US)
  Receive Date: 20121105
  Receipt Date: 20121206
  Transmission Date: 20130627
  Serious: Yes (Other)
  Sender: FDA-Public Use
  Company Number: CHPA2012US022595

PATIENT
  Sex: Female

DRUGS (2)
  1. BENEFIBER W/ WHEAT DEXTRIN [Suspect]
     Indication: SUPPLEMENTATION THERAPY
     Dosage: Unk, Unk
     Route: 048
     Dates: start: 201109, end: 201110
  2. DULCOLAX [Suspect]
     Dosage: Unk, Unk
     Dates: start: 201109, end: 2011

REACTIONS (2)
  - Myocardial infarction [Recovered/Resolved]
  - Gastric disorder [Recovered/Resolved]
